FAERS Safety Report 25545402 (Version 5)
Quarter: 2025Q4

REPORT INFORMATION
  Report Type: Report from Study
  Country: US (occurrence: US)
  Receive Date: 20250711
  Receipt Date: 20251230
  Transmission Date: 20260118
  Serious: Yes (Other)
  Sender: PFIZER
  Company Number: US-PFIZER INC-PV202500075352

PATIENT
  Age: 95 Year
  Sex: Female

DRUGS (5)
  1. IBRANCE [Suspect]
     Active Substance: PALBOCICLIB
     Indication: Breast cancer female
     Dosage: 100 MG, FOR 21 DAYS AND OFF 7 DAYS
     Route: 048
     Dates: start: 20250605
  2. IBRANCE [Suspect]
     Active Substance: PALBOCICLIB
     Dosage: 2 DOSES IN 1 DAY
     Route: 048
  3. IBRANCE [Suspect]
     Active Substance: PALBOCICLIB
     Dosage: 100 MG  DAILY FOR 21 DAYS AND OFF 7 DAYS
     Route: 048
  4. IBRANCE [Suspect]
     Active Substance: PALBOCICLIB
     Dosage: 100 MG, DAILY FOR THREE WEEKS WITH ONE WEEK OFF
     Route: 048
  5. IBRANCE [Suspect]
     Active Substance: PALBOCICLIB
     Dosage: 100 MG, DAILY FOR 21 DAYS, THEN OFF FOR 7 DAYS
     Route: 048
     Dates: start: 20250605

REACTIONS (7)
  - Hallucination [Not Recovered/Not Resolved]
  - Skull fracture [Unknown]
  - Wrist fracture [Unknown]
  - Decreased appetite [Unknown]
  - Fall [Unknown]
  - Off label use [Unknown]
  - Extra dose administered [Unknown]

NARRATIVE: CASE EVENT DATE: 20250701
